FAERS Safety Report 4554840-9 (Version None)
Quarter: 2005Q1

REPORT INFORMATION
  Report Type: 
  Country: None (occurrence: None)
  Receive Date: 20041228
  Receipt Date: 20041005
  Transmission Date: 20050727
  Serious: No
  Sender: FDA-Public Use
  Company Number: IND-AE-04-SAN-003

PATIENT
  Age: 52 Year
  Sex: Female

DRUGS (6)
  1. SANCTURA [Suspect]
     Indication: HYPERTONIC BLADDER
     Dosage: 20 MG, BID, ORAL
     Route: 048
     Dates: start: 20040925, end: 20041001
  2. SANCTURA [Suspect]
  3. AVONEX [Concomitant]
  4. MAXZIDE [Concomitant]
  5. TOPROL-XL [Concomitant]
  6. ACCUPRIL [Concomitant]

REACTIONS (1)
  - RASH PAPULAR [None]
